FAERS Safety Report 4785409-9 (Version None)
Quarter: 2005Q3

REPORT INFORMATION
  Report Type: 
  Country: None (occurrence: None)
  Receive Date: 20050929
  Receipt Date: 20050913
  Transmission Date: 20060218
  Serious: Yes (Hospitalization, Disabling)
  Sender: FDA-Public Use
  Company Number: 11813

PATIENT
  Age: 12 Month
  Sex: Male
  Weight: 11 kg

DRUGS (9)
  1. METHOTREXATE [Suspect]
     Indication: ACUTE LYMPHOCYTIC LEUKAEMIA
     Dosage: 8 MG FREQ IT
     Route: 037
     Dates: start: 20050404
  2. VINCRISTINE [Concomitant]
  3. CO-TRIMOXAZOLE [Concomitant]
  4. DEXAMETHASONE [Concomitant]
  5. MERCAPTOPURINE [Concomitant]
  6. ASPARAGINASE [Concomitant]
  7. CEFTAZIDIME [Concomitant]
  8. TAZOCIN [Concomitant]
  9. MEROPENEM [Concomitant]

REACTIONS (1)
  - ENCEPHALITIS [None]
